FAERS Safety Report 21079211 (Version 5)
Quarter: 2022Q3

REPORT INFORMATION
  Report Type: Report from Study
  Country: IL (occurrence: IL)
  Receive Date: 20220714
  Receipt Date: 20220912
  Transmission Date: 20221027
  Serious: Yes (Other)
  Sender: FDA-Public Use
  Company Number: IL-ABBVIE-22K-082-4459189-00

PATIENT
  Age: 59 Year
  Sex: Female

DRUGS (3)
  1. CARBIDOPA\LEVODOPA [Suspect]
     Active Substance: CARBIDOPA\LEVODOPA
     Indication: Parkinson^s disease
     Route: 050
     Dates: start: 20180512
  2. CARBIDOPA\LEVODOPA [Suspect]
     Active Substance: CARBIDOPA\LEVODOPA
     Dosage: MORNING DOSAGE(ML) 10.5, CONTINUOUS DOSAGE (ML/H) 2.9 , EXTRA DOSAGE (ML) 2.0
     Route: 050
  3. CARBIDOPA\LEVODOPA [Suspect]
     Active Substance: CARBIDOPA\LEVODOPA
     Dosage: CONTINUOUS DOSE HAS BEEN INCREASED SLIGHTLY AND EXTRA DOSE HAS BEEN DECREASED SLIGHTLY.
     Route: 050

REACTIONS (12)
  - Periumbilical abscess [Recovered/Resolved]
  - Stoma site inflammation [Recovered/Resolved]
  - Medical device site mass [Recovering/Resolving]
  - Medical device site swelling [Recovering/Resolving]
  - Medical device site mass [Recovering/Resolving]
  - Candida infection [Recovering/Resolving]
  - Stoma site irritation [Unknown]
  - Stoma site erythema [Recovered/Resolved]
  - Stoma site reaction [Unknown]
  - Insomnia [Unknown]
  - Stoma site discharge [Recovering/Resolving]
  - Stoma site discharge [Unknown]

NARRATIVE: CASE EVENT DATE: 20220601
